FAERS Safety Report 13794092 (Version 1)
Quarter: 2017Q3

REPORT INFORMATION
  Report Type: Spontaneous
  Country: US (occurrence: US)
  Receive Date: 20170726
  Receipt Date: 20170726
  Transmission Date: 20171127
  Serious: Yes (Hospitalization)
  Sender: FDA-Public Use
  Company Number: None

PATIENT
  Age: 80 Year
  Sex: Male

DRUGS (9)
  1. LUPRON DEPOT [Suspect]
     Active Substance: LEUPROLIDE ACETATE
     Indication: PROSTATE CANCER
     Dosage: 45MG Q6M IM
     Route: 030
     Dates: start: 20150609
  2. ATENOLOL. [Concomitant]
     Active Substance: ATENOLOL
  3. COUMADIN [Concomitant]
     Active Substance: WARFARIN SODIUM
  4. PRAVASTATIN. [Concomitant]
     Active Substance: PRAVASTATIN
  5. ASPIRIN. [Concomitant]
     Active Substance: ASPIRIN
  6. VITAMIN B1 [Concomitant]
     Active Substance: THIAMINE HYDROCHLORIDE
  7. XTANDI [Concomitant]
     Active Substance: ENZALUTAMIDE
  8. XGEVA [Concomitant]
     Active Substance: DENOSUMAB
  9. CALCIUM [Concomitant]
     Active Substance: CALCIUM

REACTIONS (2)
  - Haemoglobin decreased [None]
  - Syncope [None]

NARRATIVE: CASE EVENT DATE: 20170724
